FAERS Safety Report 9174815 (Version 1)
Quarter: 2013Q1

REPORT INFORMATION
  Report Type: Spontaneous
  Country: FR (occurrence: FR)
  Receive Date: 20130320
  Receipt Date: 20130320
  Transmission Date: 20140127
  Serious: Yes (Other)
  Sender: FDA-Public Use
  Company Number: FR-009507513-1302FRA002167

PATIENT
  Age: 47 Year
  Sex: Female

DRUGS (1)
  1. TRUSOPT [Suspect]
     Indication: PROPHYLAXIS
     Dosage: 2 DF, QD
     Route: 047
     Dates: start: 20121227, end: 20130120

REACTIONS (7)
  - Visual brightness [Recovering/Resolving]
  - Loss of visual contrast sensitivity [Recovering/Resolving]
  - Visual impairment [Recovering/Resolving]
  - Accommodation disorder [Recovering/Resolving]
  - Vision blurred [Recovering/Resolving]
  - Myopia [None]
  - Astigmatism [None]
